FAERS Safety Report 8441398 (Version 3)
Quarter: 2014Q1

REPORT INFORMATION
  Report Type: Spontaneous
  Country: US (occurrence: US)
  Receive Date: 20120305
  Receipt Date: 20140124
  Transmission Date: 20141002
  Serious: Yes (Hospitalization)
  Sender: FDA-Public Use
  Company Number: US-GLAXOSMITHKLINE-A0932361A

PATIENT
  Age: 70 Year
  Sex: Male

DRUGS (1)
  1. AVANDIA [Suspect]
     Indication: DIABETES MELLITUS
     Dosage: 4MG PER DAY
     Route: 048
     Dates: start: 200607, end: 200707

REACTIONS (7)
  - Cerebrovascular accident [Not Recovered/Not Resolved]
  - Convulsion [Unknown]
  - Cardiovascular disorder [Unknown]
  - Vision blurred [Unknown]
  - Balance disorder [Unknown]
  - Vertigo [Unknown]
  - Cardiac failure congestive [Unknown]
